FAERS Safety Report 5466706-0 (Version None)
Quarter: 2007Q3

REPORT INFORMATION
  Report Type: 
  Country: None (occurrence: None)
  Receive Date: 20070924
  Receipt Date: 20070924
  Transmission Date: 20080115
  Serious: Yes (Hospitalization)
  Sender: FDA-Public Use
  Company Number: None

PATIENT
  Sex: Female
  Weight: 57.27 kg

DRUGS (2)
  1. MERCAPTOPURINE [Suspect]
     Dosage: 100 MG
     Dates: start: 20070801, end: 20070914
  2. METHOTREXATE [Suspect]
     Dosage: 30 MG
     Dates: end: 20070912

REACTIONS (3)
  - ASTHENIA [None]
  - HEPATIC ENZYME INCREASED [None]
  - HYPOKALAEMIA [None]
